FAERS Safety Report 9999275 (Version 1)
Quarter: 2014Q1

REPORT INFORMATION
  Report Type: Spontaneous
  Country: US (occurrence: None)
  Receive Date: 20140311
  Receipt Date: 20140311
  Transmission Date: 20141002
  Serious: Yes (Other)
  Sender: FDA-Public Use
  Company Number: None

PATIENT
  Age: 48 Year
  Sex: Female
  Weight: 69.4 kg

DRUGS (1)
  1. CIPROFLOXACIN HCL [Suspect]
     Indication: DIARRHOEA INFECTIOUS
     Dosage: 1 PILL  TWICE DAILY TAKEN BY MOUTH
     Route: 048
     Dates: start: 20140307

REACTIONS (4)
  - Heart rate increased [None]
  - Tremor [None]
  - Paraesthesia [None]
  - Hypoaesthesia [None]
